FAERS Safety Report 8998933 (Version 1)
Quarter: 2013Q1

REPORT INFORMATION
  Report Type: Spontaneous
  Country: US (occurrence: US)
  Receive Date: 20130103
  Receipt Date: 20130103
  Transmission Date: 20140127
  Serious: No
  Sender: FDA-Public Use
  Company Number: US-PFIZER INC-2012331017

PATIENT
  Age: 57 Year
  Sex: Male

DRUGS (3)
  1. NITROSTAT [Suspect]
     Dosage: 0.4 MG, UNK
  2. PLAVIX [Concomitant]
     Dosage: 75 MG, 1X/DAY
     Route: 048
  3. VASOTEC [Concomitant]
     Dosage: 2.5 MG, 1X/DAY
     Route: 048

REACTIONS (3)
  - Fatigue [Unknown]
  - Chest pain [Unknown]
  - Neck pain [Unknown]
